FAERS Safety Report 7654090-3 (Version None)
Quarter: 2011Q3

REPORT INFORMATION
  Report Type: 
  Country: None (occurrence: None)
  Receive Date: 20110803
  Receipt Date: 20110726
  Transmission Date: 20111222
  Serious: Yes (Other)
  Sender: FDA-Public Use
  Company Number: PHHY2011US53822

PATIENT
  Age: 62 Year
  Sex: Male

DRUGS (2)
  1. TOBI [Suspect]
     Indication: PSEUDOMONAS BRONCHITIS
     Dosage: 300/5 MG/ML, BID
  2. XOPENEX [Concomitant]

REACTIONS (3)
  - RESPIRATORY TRACT IRRITATION [None]
  - OXYGEN SATURATION DECREASED [None]
  - LUNG DISORDER [None]
